FAERS Safety Report 7456000-0 (Version None)
Quarter: 2011Q2

REPORT INFORMATION
  Report Type: 
  Country: None (occurrence: None)
  Receive Date: 20110503
  Receipt Date: 20110408
  Transmission Date: 20111010
  Serious: Yes (Life-Threatening, Hospitalization, Disabling, Other)
  Sender: FDA-Public Use
  Company Number: TR-SANOFI-AVENTIS-2011SA021384

PATIENT
  Age: 55 Year
  Sex: Male
  Weight: 73 kg

DRUGS (18)
  1. EPTIFIBATIDE [Suspect]
     Indication: ACUTE CORONARY SYNDROME
     Route: 042
     Dates: start: 20110405, end: 20110406
  2. AVELOX [Concomitant]
     Dates: start: 20110404, end: 20110404
  3. ACETYLCYSTEINE [Concomitant]
     Dates: start: 20110404
  4. LANSOR [Concomitant]
     Dates: start: 20110404, end: 20110404
  5. ASIST [Concomitant]
  6. BLINDED THERAPY [Suspect]
     Indication: ACUTE CORONARY SYNDROME
     Route: 042
     Dates: start: 20110405, end: 20110405
  7. CORASPIN [Suspect]
     Indication: ACUTE CORONARY SYNDROME
     Route: 048
     Dates: start: 20110405
  8. REVIL VITAMIN B12 [Concomitant]
     Dates: start: 20110404, end: 20110404
  9. ATORVASTATIN [Concomitant]
     Dates: start: 20110404, end: 20110404
  10. ALDACTONE [Concomitant]
  11. DESAL [Concomitant]
  12. PLAVIX [Suspect]
     Indication: ACUTE CORONARY SYNDROME
     Route: 048
     Dates: start: 20110404, end: 20110404
  13. ENOXAPARIN SODIUM [Concomitant]
     Route: 058
     Dates: start: 20110404, end: 20110404
  14. PLAVIX [Suspect]
     Route: 048
     Dates: start: 20110405, end: 20110406
  15. METPAMID [Concomitant]
     Dates: start: 20110404
  16. INSULIN DETEMIR [Concomitant]
     Dates: start: 20110405
  17. ROCEPHIN [Concomitant]
  18. NOVORAPID [Concomitant]

REACTIONS (2)
  - CARDIOGENIC SHOCK [None]
  - VENTRICULAR SEPTAL DEFECT [None]
